FAERS Safety Report 9555336 (Version 2)
Quarter: 2013Q4

REPORT INFORMATION
  Report Type: Spontaneous
  Country: US (occurrence: US)
  Receive Date: 20130926
  Receipt Date: 20131001
  Transmission Date: 20140711
  Serious: No
  Sender: FDA-Public Use
  Company Number: US-BAYER-2013-116195

PATIENT
  Age: 76 Year
  Sex: Female
  Weight: 91 kg

DRUGS (8)
  1. ALEVE CAPLET [Suspect]
     Indication: ARTHRITIS
     Dosage: 1 DF, QS
     Route: 048
  2. ALEVE CAPLET [Suspect]
     Indication: PAIN
  3. WARFARIN [Concomitant]
     Indication: DEEP VEIN THROMBOSIS
  4. LISINOPRIL [Concomitant]
  5. LIPITOR [Concomitant]
  6. ACIPHEX [Concomitant]
  7. CITRACAL + D [CALCIUM CITRATE,COLECALCIFEROL] [Concomitant]
  8. COUMADIN [Concomitant]

REACTIONS (1)
  - Incorrect drug administration duration [None]
